FAERS Safety Report 20262486 (Version 1)
Quarter: 2021Q4

REPORT INFORMATION
  Report Type: Spontaneous
  Country: JP (occurrence: JP)
  Receive Date: 20211231
  Receipt Date: 20211231
  Transmission Date: 20220303
  Serious: Yes (Other)
  Sender: FDA-Public Use
  Company Number: JP-ONO-2021JP033229

PATIENT
  Age: 69 Year
  Sex: Male
  Weight: 44.3 kg

DRUGS (13)
  1. OPDIVO [Suspect]
     Active Substance: NIVOLUMAB
     Indication: Non-small cell lung cancer recurrent
     Dosage: 360 MILLIGRAM
     Route: 041
     Dates: end: 20210820
  2. YERVOY [Suspect]
     Active Substance: IPILIMUMAB
     Indication: Non-small cell lung cancer recurrent
     Dosage: 40 MILLIGRAM
     Route: 041
     Dates: end: 20210730
  3. ANAMORELIN HYDROCHLORIDE [Suspect]
     Active Substance: ANAMORELIN HYDROCHLORIDE
     Indication: Cachexia
     Dosage: 100 MG, EVERYDAY
     Route: 048
     Dates: start: 20210729
  4. NIFEDIPINE [Concomitant]
     Active Substance: NIFEDIPINE
     Indication: Product used for unknown indication
     Dosage: 40 MG, EVERYDAY
     Route: 065
  5. VONOPRAZAN FUMARATE [Concomitant]
     Active Substance: VONOPRAZAN FUMARATE
     Indication: Product used for unknown indication
     Dosage: 20 MG, EVERYDAY
     Route: 065
  6. CALCIUM CARBONATE\CHOLECALCIFEROL\MAGNESIUM CARBONATE [Concomitant]
     Active Substance: CALCIUM CARBONATE\CHOLECALCIFEROL\MAGNESIUM CARBONATE
     Indication: Product used for unknown indication
     Dosage: 2 DF, EVERYDAY
     Route: 048
  7. LUNESTA [Concomitant]
     Active Substance: ESZOPICLONE
     Indication: Product used for unknown indication
     Dosage: 2 MG, EVERYDAY
     Route: 065
  8. DAYVIGO [Concomitant]
     Active Substance: LEMBOREXANT
     Indication: Product used for unknown indication
     Dosage: 5 MG, EVERYDAY
     Route: 065
  9. PEROSPIRONE HYDROCHLORIDE [Concomitant]
     Active Substance: PEROSPIRONE HYDROCHLORIDE
     Indication: Product used for unknown indication
     Dosage: 8 MG, EVERYDAY
     Route: 065
  10. URSODIOL [Concomitant]
     Active Substance: URSODIOL
     Indication: Product used for unknown indication
     Dosage: 900 MG, EVERYDAY
     Route: 065
  11. REBAMIPIDE [Concomitant]
     Active Substance: REBAMIPIDE
     Indication: Product used for unknown indication
     Dosage: 100 MG, EVERYDAY
     Route: 065
  12. MAGNESIUM OXIDE [Concomitant]
     Active Substance: MAGNESIUM OXIDE
     Indication: Product used for unknown indication
     Dosage: 330 MG, EVERYDAY
     Route: 065
  13. AUGMENTIN [Concomitant]
     Active Substance: AMOXICILLIN\CLAVULANATE POTASSIUM
     Indication: Product used for unknown indication
     Dosage: 750 MG, EVERYDAY
     Route: 048
     Dates: end: 20210813

REACTIONS (2)
  - Immune-mediated cholangitis [Unknown]
  - Pneumonia [Recovering/Resolving]

NARRATIVE: CASE EVENT DATE: 20210826
